FAERS Safety Report 6576273-6 (Version None)
Quarter: 2010Q1

REPORT INFORMATION
  Report Type: 
  Country: None (occurrence: None)
  Receive Date: 20100210
  Receipt Date: 20100204
  Transmission Date: 20100710
  Serious: Yes (Other)
  Sender: FDA-Public Use
  Company Number: US-BIOGENIDEC-2010BI003924

PATIENT
  Age: 52 Year
  Sex: Female
  Weight: 113 kg

DRUGS (1)
  1. AVONEX [Suspect]
     Indication: MULTIPLE SCLEROSIS
     Route: 030

REACTIONS (4)
  - BREAST CANCER [None]
  - CONFUSIONAL STATE [None]
  - GAIT DISTURBANCE [None]
  - MEMORY IMPAIRMENT [None]
